FAERS Safety Report 20868658 (Version 1)
Quarter: 2022Q2

REPORT INFORMATION
  Report Type: Report from Study
  Country: CN (occurrence: CN)
  Receive Date: 20220524
  Receipt Date: 20220524
  Transmission Date: 20220721
  Serious: Yes (Other)
  Sender: FDA-Public Use
  Company Number: CN-AMGEN-CHNSL2022087132

PATIENT
  Age: 47 Year
  Sex: Male

DRUGS (7)
  1. BLINCYTO [Suspect]
     Active Substance: BLINATUMOMAB
     Indication: B precursor type acute leukaemia
     Dosage: UNK
     Route: 042
  2. BLINCYTO [Suspect]
     Active Substance: BLINATUMOMAB
     Indication: Acute lymphocytic leukaemia recurrent
     Dosage: 9 MICROGRAM
     Route: 042
  3. BLINCYTO [Suspect]
     Active Substance: BLINATUMOMAB
     Dosage: 12 MICROGRAM
     Route: 042
  4. BLINCYTO [Suspect]
     Active Substance: BLINATUMOMAB
     Dosage: 17.5 MICROGRAM
     Route: 042
  5. VINDESINE SULFATE [Concomitant]
     Active Substance: VINDESINE SULFATE
     Dosage: UNK
     Route: 065
  6. PREDNISONE [Concomitant]
     Active Substance: PREDNISONE
     Dosage: UNK
     Route: 065
  7. PONATINIB [Concomitant]
     Active Substance: PONATINIB
     Dosage: UNK
     Route: 065

REACTIONS (13)
  - Hyperpyrexia [Recovered/Resolved]
  - Myelosuppression [Not Recovered/Not Resolved]
  - Acute lymphocytic leukaemia recurrent [Unknown]
  - Renal impairment [Unknown]
  - Cystitis haemorrhagic [Unknown]
  - Haemoglobin decreased [Unknown]
  - Platelet count decreased [Unknown]
  - Chills [Recovered/Resolved]
  - White blood cell count decreased [Unknown]
  - BK virus infection [Unknown]
  - Full blood count abnormal [Unknown]
  - Liver function test decreased [Unknown]
  - Acquired gene mutation [Unknown]
